FAERS Safety Report 4701542-1 (Version None)
Quarter: 2005Q2

REPORT INFORMATION
  Report Type: 
  Country: None (occurrence: None)
  Receive Date: 20050627
  Receipt Date: 20050616
  Transmission Date: 20051028
  Serious: Yes (Death, Hospitalization)
  Sender: FDA-Public Use
  Company Number: T05-ESP-01737-01

PATIENT
  Age: 86 Year
  Sex: Female
  Weight: 45 kg

DRUGS (5)
  1. MEMANTINE HCL [Suspect]
     Indication: DEMENTIA ALZHEIMER'S TYPE
     Dosage: 20 MG QD PO
     Route: 048
     Dates: start: 20050203, end: 20050501
  2. DOXAZOXIN [Concomitant]
  3. FUROSEMIDE [Concomitant]
  4. ASPIRIN [Concomitant]
  5. CALCIFEROL [Concomitant]

REACTIONS (4)
  - DEPRESSED LEVEL OF CONSCIOUSNESS [None]
  - HYPERTENSION [None]
  - MYOCARDIAL INFARCTION [None]
  - URINARY TRACT INFECTION [None]
